FAERS Safety Report 17854112 (Version 1)
Quarter: 2020Q2

REPORT INFORMATION
  Report Type: Spontaneous
  Country: NL (occurrence: NL)
  Receive Date: 20200603
  Receipt Date: 20200603
  Transmission Date: 20200714
  Serious: Yes (Other)
  Sender: FDA-Public Use
  Company Number: NVSC2020NL152417

PATIENT
  Sex: Male

DRUGS (1)
  1. OLANZAPINE SANDOZ [Suspect]
     Active Substance: OLANZAPINE
     Indication: PRODUCT USED FOR UNKNOWN INDICATION
     Dosage: 15 MG, UNKNOWN
     Route: 065

REACTIONS (2)
  - Psychotic disorder [Unknown]
  - Product dose omission [Unknown]
